FAERS Safety Report 16883956 (Version 2)
Quarter: 2019Q4

REPORT INFORMATION
  Report Type: Spontaneous
  Country: ES (occurrence: ES)
  Receive Date: 20191004
  Receipt Date: 20191220
  Transmission Date: 20200122
  Serious: Yes (Hospitalization)
  Sender: FDA-Public Use
  Company Number: ES-TEVA-2019-ES-1118056

PATIENT
  Age: 57 Year
  Sex: Female

DRUGS (4)
  1. VINCRISTINA (809A) [Suspect]
     Active Substance: VINCRISTINE SULFATE
     Indication: B-CELL LYMPHOMA
     Dosage: 2 MG EVERY 21 DAYS
     Route: 042
     Dates: start: 20190814, end: 20190814
  2. CICLOFOSFAMIDA (120A) [Suspect]
     Active Substance: CYCLOPHOSPHAMIDE
     Indication: B-CELL LYMPHOMA
     Dosage: 1200 MG EVERY 21 DAYS
     Route: 042
     Dates: start: 20190814, end: 20190814
  3. DOXORRUBICINA [Suspect]
     Active Substance: DOXORUBICIN HYDROCHLORIDE
     Indication: B-CELL LYMPHOMA
     Dosage: 81 MG EVERY 21 DAYS
     Route: 042
     Dates: start: 20190814, end: 20190914
  4. RITUXIMAB (2814A) [Suspect]
     Active Substance: RITUXIMAB
     Indication: B-CELL LYMPHOMA
     Dosage: 610 MG EVERY 21 DAYS
     Route: 042
     Dates: start: 20190814, end: 20190814

REACTIONS (2)
  - Pancytopenia [Recovering/Resolving]
  - Mucosal inflammation [Recovered/Resolved]

NARRATIVE: CASE EVENT DATE: 20190824
